FAERS Safety Report 6819430-3 (Version None)
Quarter: 2010Q3

REPORT INFORMATION
  Report Type: 
  Country: None (occurrence: None)
  Receive Date: 20100707
  Receipt Date: 20100628
  Transmission Date: 20110219
  Serious: Yes (Other)
  Sender: FDA-Public Use
  Company Number: JP-PFIZER INC-2010079815

PATIENT

DRUGS (1)
  1. DIFLUCAN [Suspect]
     Route: 048

REACTIONS (3)
  - DRUG RASH WITH EOSINOPHILIA AND SYSTEMIC SYMPTOMS [None]
  - PSEUDOMEMBRANOUS COLITIS [None]
  - TOXIC EPIDERMAL NECROLYSIS [None]
